FAERS Safety Report 12325347 (Version 2)
Quarter: 2016Q2

REPORT INFORMATION
  Report Type: Report from Study
  Country: US (occurrence: US)
  Receive Date: 20160502
  Receipt Date: 20160627
  Transmission Date: 20160815
  Serious: Yes (Hospitalization, Other)
  Sender: FDA-Public Use
  Company Number: US-GILEAD-2016-0210979

PATIENT
  Age: 16 Year
  Sex: Male

DRUGS (14)
  1. PULMOZYME [Concomitant]
     Active Substance: DORNASE ALFA
  2. ORKAMBI [Concomitant]
     Active Substance: IVACAFTOR\LUMACAFTOR
  3. MEROPENEM. [Concomitant]
     Active Substance: MEROPENEM
  4. COLISTIN [Concomitant]
     Active Substance: COLISTIN
  5. AZTREONAM LYSINE [Suspect]
     Active Substance: AZTREONAM LYSINE
     Indication: CYSTIC FIBROSIS LUNG
     Dosage: 75 MG, UNK
     Route: 055
     Dates: start: 20160205
  6. NOVOLIN R [Concomitant]
     Active Substance: INSULIN HUMAN
  7. CREON [Concomitant]
     Active Substance: PANCRELIPASE AMYLASE\PANCRELIPASE LIPASE\PANCRELIPASE PROTEASE
  8. ZITHROMAX [Concomitant]
     Active Substance: AZITHROMYCIN DIHYDRATE
  9. FLONASE [Concomitant]
     Active Substance: FLUTICASONE PROPIONATE
  10. SODIUM CHLORIDE. [Concomitant]
     Active Substance: SODIUM CHLORIDE
  11. ADEKS                              /06351501/ [Concomitant]
  12. VENTOLIN HFA [Concomitant]
     Active Substance: ALBUTEROL SULFATE
  13. ZYRTEC [Concomitant]
     Active Substance: CETIRIZINE HYDROCHLORIDE
  14. VITAMIN D3 [Concomitant]
     Active Substance: CHOLECALCIFEROL

REACTIONS (3)
  - Central venous catheterisation [Unknown]
  - Infective pulmonary exacerbation of cystic fibrosis [Unknown]
  - Gastrostomy [Unknown]

NARRATIVE: CASE EVENT DATE: 20160425
